FAERS Safety Report 22267223 (Version 1)
Quarter: 2023Q2

REPORT INFORMATION
  Report Type: Spontaneous
  Country: GB (occurrence: GB)
  Receive Date: 20230428
  Receipt Date: 20230428
  Transmission Date: 20230722
  Serious: Yes (Other)
  Sender: FDA-Public Use
  Company Number: None

PATIENT
  Age: 34 Year
  Sex: Female

DRUGS (2)
  1. HYDROCORTISONE BUTYRATE [Suspect]
     Active Substance: HYDROCORTISONE BUTYRATE
     Indication: Eczema
     Route: 065
     Dates: end: 20221123
  2. BETNOVATE [Suspect]
     Active Substance: BETAMETHASONE
     Indication: Eczema
     Route: 065
     Dates: end: 20221123

REACTIONS (6)
  - Skin weeping [Not Recovered/Not Resolved]
  - Skin exfoliation [Not Recovered/Not Resolved]
  - Insomnia [Recovering/Resolving]
  - Neuralgia [Recovering/Resolving]
  - Pruritus [Not Recovered/Not Resolved]
  - Maternal exposure during breast feeding [Unknown]

NARRATIVE: CASE EVENT DATE: 20221101
